FAERS Safety Report 6407891-3 (Version None)
Quarter: 2009Q4

REPORT INFORMATION
  Report Type: 
  Country: None (occurrence: None)
  Receive Date: 20091015
  Receipt Date: 20091001
  Transmission Date: 20100525
  Serious: Yes (Other)
  Sender: FDA-Public Use
  Company Number: 1-20258947

PATIENT
  Age: 47 Year
  Sex: Female
  Weight: 102.0593 kg

DRUGS (13)
  1. FENTANYL-50 [Suspect]
     Indication: PAIN
     Dosage: 50 MCG/HR EVERY 72 HR, TRANSDERMAL
     Route: 062
     Dates: start: 20090922, end: 20090922
  2. DIAZEPAM [Concomitant]
  3. LANTUS [Concomitant]
  4. ZOCOR [Concomitant]
  5. PLAVIX [Concomitant]
  6. ZETIA [Concomitant]
  7. TRICOR [Concomitant]
  8. PROTONIX [Concomitant]
  9. ATENOLOL [Concomitant]
  10. DIOVAN [Concomitant]
  11. LOVAZA [Concomitant]
  12. METFORMIN HCL [Concomitant]
  13. DETROL LA [Concomitant]

REACTIONS (13)
  - ASTHENIA [None]
  - COLD SWEAT [None]
  - CONVULSION [None]
  - DEVICE MALFUNCTION [None]
  - DRUG INEFFECTIVE [None]
  - DRUG WITHDRAWAL SYNDROME [None]
  - DYSPNOEA [None]
  - INCORRECT DOSE ADMINISTERED [None]
  - MALAISE [None]
  - PRODUCT SUBSTITUTION ISSUE [None]
  - PYREXIA [None]
  - TREMOR [None]
  - VOMITING [None]
